FAERS Safety Report 9535583 (Version 2)
Quarter: 2013Q3

REPORT INFORMATION
  Report Type: Report from Study
  Country: GB (occurrence: GB)
  Receive Date: 20130919
  Receipt Date: 20130919
  Transmission Date: 20140515
  Serious: Yes (Hospitalization)
  Sender: FDA-Public Use
  Company Number: GB-AMGEN-GBRCT2011056902

PATIENT
  Age: 75 Year
  Sex: Female
  Weight: 49 kg

DRUGS (4)
  1. ETANERCEPT [Suspect]
     Indication: RHEUMATOID ARTHRITIS
     Dosage: 25 MG, 2 TIMES/WK
     Route: 065
     Dates: start: 20070523
  2. DICLOFENAC [Concomitant]
     Dosage: UNK
  3. PENICILLAMINE [Concomitant]
     Dosage: UNK
  4. PARACETAMOL [Concomitant]
     Dosage: 1G FOUR TIMES DAILY BY MOUTH
     Route: 048

REACTIONS (1)
  - Femoral neck fracture [Recovered/Resolved]
